FAERS Safety Report 8313154-1 (Version None)
Quarter: 2012Q2

REPORT INFORMATION
  Report Type: 
  Country: None (occurrence: None)
  Receive Date: 20120426
  Receipt Date: 20120423
  Transmission Date: 20120825
  Serious: No
  Sender: FDA-Public Use
  Company Number: US-PFIZER INC-2012100307

PATIENT
  Sex: Female
  Weight: 72.562 kg

DRUGS (2)
  1. SYNTHROID [Concomitant]
     Indication: HYPOTHYROIDISM
     Dosage: UNK
  2. NICOTROL [Suspect]
     Indication: SMOKING CESSATION THERAPY
     Dosage: 10MG/ML NASAL SPRAY UNKNOWN DOSE ONE SPRAY PER HOUR
     Route: 045
     Dates: start: 20120421, end: 20120401

REACTIONS (1)
  - NASAL DISCOMFORT [None]
